FAERS Safety Report 6947976-6 (Version None)
Quarter: 2010Q3

REPORT INFORMATION
  Report Type: 
  Country: None (occurrence: None)
  Receive Date: 20100825
  Receipt Date: 20100824
  Transmission Date: 20110219
  Serious: Yes (Other)
  Sender: FDA-Public Use
  Company Number: AE-810-283

PATIENT
  Sex: Female
  Weight: 124.2856 kg

DRUGS (21)
  1. LIDODERM [Suspect]
     Indication: MYALGIA
     Dosage: 3 PATCHES A DAY
  2. LYRICA [Suspect]
     Indication: FIBROMYALGIA
     Dosage: 15MG TID-}QID
  3. LISINOPRIL [Suspect]
     Indication: BLOOD PRESSURE
     Dosage: 10MG DAILY
  4. FLUTICASONE PROPIONATE [Suspect]
     Indication: NASAL SEPTUM DEVIATION
     Dosage: NASAL
     Route: 045
  5. SIMVASTATIN [Suspect]
     Indication: BLOOD CHOLESTEROL
     Dosage: 40MG DAILY
  6. MELOXICAM [Suspect]
     Indication: PAIN
     Dosage: 15MG BID
  7. CETIRIZINE HCL [Suspect]
     Indication: HYPERSENSITIVITY
     Dosage: 10MG DAILY
  8. ACETYLSALICYLIC ACID [Suspect]
     Dosage: 81MG DAILY
  9. LEVOTHYROXINE SODIUM [Suspect]
     Indication: THYROID DISORDER
     Dosage: 50MCG DAILY
  10. TEGRETOL [Suspect]
     Indication: AFFECTIVE DISORDER
     Dosage: 400MG
  11. PROVIGIL [Suspect]
     Indication: SLEEP APNOEA SYNDROME
     Dosage: 200MG DAILY
  12. PROPRANOLOL [Suspect]
     Indication: PAIN
     Dosage: 20MG BID
  13. METHOCARBAMOL [Suspect]
     Indication: PAIN
     Dosage: 500MG BID
  14. BACLOFEN [Suspect]
     Indication: RESTLESS LEGS SYNDROME
     Dosage: 20MG TID
  15. METHADOSE [Suspect]
     Indication: PAIN
     Dosage: 10MG 5X/DAY
  16. CYMBALTA [Suspect]
     Indication: DEPRESSION
     Dosage: 60MG BID
  17. OMEPRAZOLE [Suspect]
     Indication: GASTROOESOPHAGEAL REFLUX DISEASE
     Dosage: 40MG DAILY
  18. INSULIN DETEMIR [Suspect]
     Indication: DIABETES MELLITUS
     Dosage: 47 UNITS BID
  19. MIRALAX [Suspect]
     Indication: CONSTIPATION
     Dosage: 17G DAILY
  20. FISH OIL [Suspect]
  21. VITAMIN E [Suspect]

REACTIONS (3)
  - CONDITION AGGRAVATED [None]
  - CONVULSION [None]
  - FIBROMYALGIA [None]
